FAERS Safety Report 7304619-X (Version None)
Quarter: 2011Q1

REPORT INFORMATION
  Report Type: 
  Country: None (occurrence: None)
  Receive Date: 20110222
  Receipt Date: 20110208
  Transmission Date: 20110831
  Serious: No
  Sender: FDA-Public Use
  Company Number: US-BIOGENIDEC-2010BI043166

PATIENT
  Age: 58 Year
  Sex: Female

DRUGS (4)
  1. AVONEX [Concomitant]
     Indication: MULTIPLE SCLEROSIS
     Route: 030
     Dates: start: 20000901
  2. AVONEX [Concomitant]
     Route: 030
     Dates: end: 20030601
  3. TYSABRI [Suspect]
     Indication: MULTIPLE SCLEROSIS
     Route: 042
     Dates: start: 20100803
  4. TYSABRI [Suspect]
     Route: 042

REACTIONS (3)
  - FATIGUE [None]
  - SINUSITIS [None]
  - RHINITIS [None]
